FAERS Safety Report 16909244 (Version 1)
Quarter: 2019Q4

REPORT INFORMATION
  Report Type: Spontaneous
  Country: US (occurrence: US)
  Receive Date: 20191011
  Receipt Date: 20191011
  Transmission Date: 20200122
  Serious: Yes (Other)
  Sender: FDA-Public Use
  Company Number: US-SAOL THERAPEUTICS-2019SAO00300

PATIENT
  Age: 39 Year
  Sex: Female
  Weight: 83.45 kg

DRUGS (17)
  1. LIORESAL [Suspect]
     Active Substance: BACLOFEN
     Indication: MUSCLE SPASTICITY
     Dosage: 199 ?G, \DAY (20 ML INTRATHECAL AS DIRECTED)
     Route: 037
  2. LIORESAL [Suspect]
     Active Substance: BACLOFEN
     Dosage: 200 ?G, \DAY
     Route: 037
     Dates: start: 20190927
  3. NORCO [Concomitant]
     Active Substance: ACETAMINOPHEN\HYDROCODONE BITARTRATE
     Dosage: 1 TABLETS, 1X/DAY
     Route: 048
  4. NYSTATIN. [Concomitant]
     Active Substance: NYSTATIN
     Route: 061
  5. OXYBUTYNIN CHLORIDE ER 24 HOUR [Concomitant]
  6. LYRICA [Concomitant]
     Active Substance: PREGABALIN
  7. TOPAMAX [Concomitant]
     Active Substance: TOPIRAMATE
  8. OCREVUS [Concomitant]
     Active Substance: OCRELIZUMAB
     Route: 042
  9. GAMUNEX-C [Concomitant]
     Active Substance: HUMAN IMMUNOGLOBULIN G
     Route: 051
  10. DIAZEPAM. [Concomitant]
     Active Substance: DIAZEPAM
     Dosage: UNK, AS NEEDED
  11. VITAMIN B-6 [Concomitant]
     Active Substance: PYRIDOXINE
     Route: 048
  12. LIORESAL [Suspect]
     Active Substance: BACLOFEN
     Dosage: 199.87 ?G, \DAY
     Route: 037
     Dates: start: 20190927
  13. MEXILETINE [Concomitant]
     Active Substance: MEXILETINE
     Dosage: 150 MG, 3X/DAY
     Route: 048
  14. ADDERALL [Concomitant]
     Active Substance: AMPHETAMINE ASPARTATE\AMPHETAMINE SULFATE\DEXTROAMPHETAMINE SACCHARATE\DEXTROAMPHETAMINE SULFATE
  15. PROMETHAZINE [Concomitant]
     Active Substance: PROMETHAZINE HYDROCHLORIDE
  16. ZOFRAN [Concomitant]
     Active Substance: ONDANSETRON HYDROCHLORIDE
  17. RESTORIL [Concomitant]
     Active Substance: TEMAZEPAM

REACTIONS (9)
  - Pain [Unknown]
  - Muscle spasms [Unknown]
  - Multiple sclerosis [Unknown]
  - Back disorder [Unknown]
  - Implant site pain [Recovered/Resolved]
  - Weight decreased [Unknown]
  - Allodynia [Recovered/Resolved]
  - Hyperpathia [Recovered/Resolved]
  - Arthralgia [Unknown]

NARRATIVE: CASE EVENT DATE: 201904
